FAERS Safety Report 16514451 (Version 2)
Quarter: 2019Q4

REPORT INFORMATION
  Report Type: Other
  Country: AU (occurrence: AU)
  Receive Date: 20190702
  Receipt Date: 20191031
  Transmission Date: 20200122
  Serious: Yes (Other)
  Sender: FDA-Public Use
  Company Number: AU-DEXPHARM-20190439

PATIENT
  Age: 28 Year
  Sex: Female

DRUGS (1)
  1. 2% CHLORHEXIDINE/70% ALCOHOL SOLUTION [Suspect]
     Active Substance: ALCOHOL\CHLORHEXIDINE GLUCONATE
     Indication: INFECTION PROPHYLAXIS
     Route: 061

REACTIONS (1)
  - Chemical burn [Recovered/Resolved]
